FAERS Safety Report 7518703-9 (Version None)
Quarter: 2011Q2

REPORT INFORMATION
  Report Type: 
  Country: None (occurrence: None)
  Receive Date: 20110602
  Receipt Date: 20110520
  Transmission Date: 20111010
  Serious: Yes (Hospitalization)
  Sender: FDA-Public Use
  Company Number: PHFR2011IE03185

PATIENT
  Sex: Female

DRUGS (2)
  1. CLOZARIL [Suspect]
     Indication: SCHIZOPHRENIA
     Route: 048
     Dates: start: 19990412, end: 20110513
  2. BENZODIAZEPINES [Concomitant]

REACTIONS (3)
  - NEUROLEPTIC MALIGNANT SYNDROME [None]
  - BLOOD CREATINE PHOSPHOKINASE INCREASED [None]
  - CATATONIA [None]
